FAERS Safety Report 5910712-6 (Version None)
Quarter: 2008Q4

REPORT INFORMATION
  Report Type: 
  Country: None (occurrence: None)
  Receive Date: 20081006
  Receipt Date: 20081006
  Transmission Date: 20090506
  Serious: Yes (Life-Threatening, Hospitalization)
  Sender: FDA-Public Use
  Company Number: None

PATIENT
  Age: 52 Year
  Sex: Female
  Weight: 54.4316 kg

DRUGS (1)
  1. CHANTIX [Suspect]
     Indication: SMOKING CESSATION THERAPY
     Dosage: .5MG, 1MG
     Dates: start: 20080916, end: 20080928

REACTIONS (4)
  - FEELING ABNORMAL [None]
  - LOSS OF CONSCIOUSNESS [None]
  - ROAD TRAFFIC ACCIDENT [None]
  - SYNCOPE [None]
